FAERS Safety Report 24594715 (Version 1)
Quarter: 2024Q4

REPORT INFORMATION
  Report Type: Spontaneous
  Country: US (occurrence: None)
  Receive Date: 20241108
  Receipt Date: 20241108
  Transmission Date: 20250115
  Serious: Yes (Hospitalization)
  Sender: Public
  Company Number: None

PATIENT
  Age: 60 Year
  Sex: Female

DRUGS (1)
  1. TYMLOS [Suspect]
     Active Substance: ABALOPARATIDE
     Indication: Senile osteoporosis
     Dosage: FREQUENCY : DAILY;?
     Route: 058

REACTIONS (7)
  - Blood potassium decreased [None]
  - Hepatic enzyme increased [None]
  - Weight decreased [None]
  - Constipation [None]
  - Joint swelling [None]
  - Joint noise [None]
  - Varicose vein [None]
